FAERS Safety Report 10297486 (Version 1)
Quarter: 2014Q3

REPORT INFORMATION
  Report Type: Report from Study
  Country: US (occurrence: US)
  Receive Date: 20140711
  Receipt Date: 20140711
  Transmission Date: 20150326
  Serious: Yes (Other)
  Sender: FDA-Public Use
  Company Number: US-SA-2014SA088540

PATIENT
  Sex: Female

DRUGS (1)
  1. LANTUS [Suspect]
     Active Substance: INSULIN GLARGINE
     Indication: TYPE 2 DIABETES MELLITUS
     Dosage: ON LANTUS FOR ABOUT 2 TO 3 YEARS DOSE:22 UNIT(S)
     Route: 058

REACTIONS (6)
  - Automatic bladder [Unknown]
  - Cataract [Unknown]
  - Parathyroid disorder [Unknown]
  - Infection [Unknown]
  - Blood glucose increased [Unknown]
  - Renal failure [Not Recovered/Not Resolved]
